FAERS Safety Report 21748607 (Version 1)
Quarter: 2022Q4

REPORT INFORMATION
  Report Type: Spontaneous
  Country: US (occurrence: None)
  Receive Date: 20221218
  Receipt Date: 20221218
  Transmission Date: 20230112
  Serious: Yes (Disabling)
  Sender: FDA-Public Use
  Company Number: None

PATIENT
  Age: 58 Year
  Sex: Female
  Weight: 112.5 kg

DRUGS (3)
  1. TRULICITY [Suspect]
     Active Substance: DULAGLUTIDE
     Indication: Glucose tolerance impaired
     Dosage: OTHER FREQUENCY : WEEKLY;?OTHER ROUTE : INJECTION INTO ABDOMINAL FATTY TISSUE;?
     Route: 050
  2. TRULICITY [Suspect]
     Active Substance: DULAGLUTIDE
     Indication: Weight control
  3. VITAMIN D [Concomitant]
     Active Substance: VITAMIN D NOS

REACTIONS (6)
  - Back pain [None]
  - Hot flush [None]
  - Chills [None]
  - Gastritis [None]
  - Pain [None]
  - Pain [None]

NARRATIVE: CASE EVENT DATE: 20220722
